FAERS Safety Report 21263403 (Version 1)
Quarter: 2022Q3

REPORT INFORMATION
  Report Type: Spontaneous
  Country: FR (occurrence: FR)
  Receive Date: 20220829
  Receipt Date: 20220829
  Transmission Date: 20221027
  Serious: Yes (Hospitalization)
  Sender: FDA-Public Use
  Company Number: None

PATIENT
  Age: 35 Year
  Sex: Female

DRUGS (5)
  1. FLUDARABINE PHOSPHATE [Suspect]
     Active Substance: FLUDARABINE PHOSPHATE
     Indication: Acute myeloid leukaemia
     Dosage: FREQUENCY TIME: 1 DAY, DURATION: 3 DAYS, UNIT DOSE: 50 MG
     Dates: start: 20220623, end: 20220626
  2. CYCLOPHOSPHAMIDE [Suspect]
     Active Substance: CYCLOPHOSPHAMIDE
     Indication: Acute myeloid leukaemia
     Dosage: FREQUENCY TIME : 1 DAY, DURATION: 1 DAY, UNIT DOSE: 3 GM
     Dates: start: 20220702, end: 20220703
  3. AMSACRINE [Suspect]
     Active Substance: AMSACRINE
     Indication: Acute myeloid leukaemia
     Dosage: FORM STRENGTH : 75 MG, FREQUENCY TIME : 1 DAY, DURATION: 3 DAYS, UNIT DOSE: 150 MG
     Dates: start: 20220623, end: 20220626
  4. BUSULFAN [Suspect]
     Active Substance: BUSULFAN
     Indication: Acute myeloid leukaemia
     Dosage: FREQUENCY TIME : 1 DAY, DURATION: 1 DAY, UNIT DOSE: 175 MG
     Dates: start: 20220630, end: 20220701
  5. CYTARABINE [Suspect]
     Active Substance: CYTARABINE
     Indication: Acute myeloid leukaemia
     Dosage: FREQUENCY TIME : 2 DAYS, DURATION : 3 DAYS, UNIT DOSE: 1500 MG
     Dates: start: 20220626, end: 20220629

REACTIONS (1)
  - Infusion site eschar [Recovered/Resolved with Sequelae]

NARRATIVE: CASE EVENT DATE: 20220707
